FAERS Safety Report 20176957 (Version 1)
Quarter: 2021Q4

REPORT INFORMATION
  Report Type: Spontaneous
  Country: RU (occurrence: None)
  Receive Date: 20211213
  Receipt Date: 20211213
  Transmission Date: 20220303
  Serious: Yes (Life-Threatening)
  Sender: FDA-Public Use
  Company Number: 2021A863899

PATIENT
  Age: 65 Year
  Sex: Female
  Weight: 66 kg

DRUGS (5)
  1. SYMBICORT [Suspect]
     Active Substance: BUDESONIDE\FORMOTEROL FUMARATE DIHYDRATE
     Indication: Asthma
     Dosage: INHALATION, 160 MCG + 4.5 MCG/DOSE
     Route: 055
     Dates: start: 20210604, end: 20210701
  2. FENOTEROL HYDROBROMIDE\IPRATROPIUM BROMIDE [Suspect]
     Active Substance: FENOTEROL HYDROBROMIDE\IPRATROPIUM BROMIDE
     Indication: Asthma
     Dosage: 20 MCG + 50 MCG/DOSE,
     Route: 055
     Dates: start: 20210604, end: 20210701
  3. FOSTER [Concomitant]
     Active Substance: BECLOMETHASONE\FORMOTEROL
     Indication: Asthma
     Dosage: DOSAGE - 100 MCG + 6 M??G/DOSE
     Route: 055
     Dates: start: 20200210
  4. DEXAMETHASONE [Concomitant]
     Active Substance: DEXAMETHASONE
     Route: 042
  5. FENOTEROL HYDROBROMIDE\IPRATROPIUM BROMIDE [Concomitant]
     Active Substance: FENOTEROL HYDROBROMIDE\IPRATROPIUM BROMIDE
     Route: 042

REACTIONS (3)
  - Dyspnoea [Recovered/Resolved]
  - Asphyxia [Recovered/Resolved]
  - Exercise tolerance decreased [Recovered/Resolved]

NARRATIVE: CASE EVENT DATE: 20210701
